FAERS Safety Report 24387772 (Version 1)
Quarter: 2024Q4

REPORT INFORMATION
  Report Type: Spontaneous
  Country: PL (occurrence: PL)
  Receive Date: 20241002
  Receipt Date: 20241002
  Transmission Date: 20250114
  Serious: Yes (Other)
  Sender: FRESENIUS KABI
  Company Number: None

PATIENT
  Age: 43 Year
  Sex: Female
  Weight: 60 kg

DRUGS (3)
  1. PROPOFOL 1% [Suspect]
     Active Substance: PROPOFOL
     Indication: Product used for unknown indication
     Dosage: THERAPY START TIME:  15:45?THERAPY END TIME:  16:00
     Route: 042
     Dates: start: 20200107, end: 20200107
  2. FENTANYL [Concomitant]
     Active Substance: FENTANYL
     Indication: Product used for unknown indication
     Route: 042
     Dates: start: 20200107, end: 20200107
  3. MIDANIUM 1 MG/ML SOLUTION FOR INJECTION [Concomitant]
     Indication: Product used for unknown indication
     Route: 042
     Dates: start: 20200107

REACTIONS (5)
  - Chills [Recovered/Resolved]
  - Nausea [Recovered/Resolved]
  - Headache [Recovered/Resolved]
  - Abdominal pain [Recovered/Resolved]
  - Vomiting [Recovered/Resolved]

NARRATIVE: CASE EVENT DATE: 20200107
